FAERS Safety Report 6964888-2 (Version None)
Quarter: 2010Q3

REPORT INFORMATION
  Report Type: 
  Country: None (occurrence: None)
  Receive Date: 20100903
  Receipt Date: 20100826
  Transmission Date: 20110219
  Serious: Yes (Other)
  Sender: FDA-Public Use
  Company Number: US-ELI_LILLY_AND_COMPANY-US200710007646

PATIENT
  Sex: Female

DRUGS (3)
  1. HUMALOG [Suspect]
     Indication: TYPE 2 DIABETES MELLITUS
     Dosage: UNK, AS NEEDED
  2. LANTUS [Concomitant]
     Dosage: 30 U, DAILY (1/D)
  3. SYMLIN [Concomitant]

REACTIONS (7)
  - BLOOD GLUCOSE INCREASED [None]
  - EYE LASER SURGERY [None]
  - MACULAR OEDEMA [None]
  - MUSCLE SPASMS [None]
  - RETINAL SCAR [None]
  - VISUAL ACUITY REDUCED [None]
  - VITRECTOMY [None]
